FAERS Safety Report 24384150 (Version 3)
Quarter: 2024Q4

REPORT INFORMATION
  Report Type: Spontaneous
  Country: DE (occurrence: DE)
  Receive Date: 20241001
  Receipt Date: 20241230
  Transmission Date: 20250115
  Serious: Yes (Other)
  Sender: NOVO NORDISK
  Company Number: DE-NOVOPROD-1284057

PATIENT
  Age: 34 Year
  Sex: Female
  Weight: 69 kg

DRUGS (2)
  1. FIASP [Suspect]
     Active Substance: INSULIN ASPART
     Indication: Type 1 diabetes mellitus
     Dosage: 40IU
     Route: 058
     Dates: start: 20240908, end: 20240908
  2. FIASP [Suspect]
     Active Substance: INSULIN ASPART
     Dosage: UNK(NEW CARTRIDGE)
     Route: 058

REACTIONS (4)
  - Blood ketone body present [Recovered/Resolved]
  - Blood glucose increased [Recovered/Resolved]
  - Product physical issue [Unknown]
  - Product leakage [Unknown]

NARRATIVE: CASE EVENT DATE: 20240908
